FAERS Safety Report 9333598 (Version 2)
Quarter: 2013Q4

REPORT INFORMATION
  Report Type: Spontaneous
  Country: US (occurrence: US)
  Receive Date: 20130606
  Receipt Date: 20131008
  Transmission Date: 20140711
  Serious: No
  Sender: FDA-Public Use
  Company Number: US-AMGEN-USASP2012081479

PATIENT
  Age: 85 Year
  Sex: Female
  Weight: 43.99 kg

DRUGS (2)
  1. PROLIA [Suspect]
     Indication: OSTEOPOROSIS POSTMENOPAUSAL
     Dosage: 60 MG, ONE TIME DOSE
     Route: 058
     Dates: start: 20121001
  2. LABETALOL [Concomitant]
     Dosage: UNK

REACTIONS (1)
  - Lacrimation increased [Not Recovered/Not Resolved]
